FAERS Safety Report 6174448-1 (Version None)
Quarter: 2009Q2

REPORT INFORMATION
  Report Type: 
  Country: None (occurrence: None)
  Receive Date: 20090430
  Receipt Date: 20080611
  Transmission Date: 20091009
  Serious: No
  Sender: FDA-Public Use
  Company Number: US-ASTRAZENECA-2008UW11772

PATIENT
  Age: 29 Year
  Sex: Female
  Weight: 56.7 kg

DRUGS (2)
  1. NEXIUM [Suspect]
     Route: 048
     Dates: start: 20080522, end: 20080604
  2. ORTHO TRI-CYCLEN LO [Concomitant]

REACTIONS (4)
  - DRY MOUTH [None]
  - LIP DRY [None]
  - OROPHARYNGEAL PAIN [None]
  - THROAT IRRITATION [None]
